FAERS Safety Report 22242525 (Version 2)
Quarter: 2023Q4

REPORT INFORMATION
  Report Type: Spontaneous
  Country: US (occurrence: US)
  Receive Date: 20230422
  Receipt Date: 20231005
  Transmission Date: 20240110
  Serious: No
  Sender: FDA-Public Use
  Company Number: US-Teikoku Pharma USA-TPU2023-00184

PATIENT
  Sex: Female
  Weight: 127.12 kg

DRUGS (8)
  1. LIDOCAINE PATCH [Suspect]
     Active Substance: LIDOCAINE
     Indication: Osteoarthritis
     Dosage: TWO YEARS AFTER SHE STARTED LIDODERM PATCHES
     Route: 061
  2. LIDOCAINE PATCH [Suspect]
     Active Substance: LIDOCAINE
     Indication: Fibromyalgia
  3. LIDODERM [Suspect]
     Active Substance: LIDOCAINE
     Indication: Osteoarthritis
     Dosage: STATED LIDODERM ^WHEN THE PATCHES FIRST CAME OUT^, WHICH SHE DESCRIBED AS SIX YEARS AGO
     Route: 061
  4. LIDODERM [Suspect]
     Active Substance: LIDOCAINE
     Indication: Fibromyalgia
  5. NOVOLOG [Concomitant]
     Active Substance: INSULIN ASPART
  6. LEVEMIR [Concomitant]
     Active Substance: INSULIN DETEMIR
  7. VICTOZA [Concomitant]
     Active Substance: LIRAGLUTIDE
  8. ^generic Percocet^ Oxycodone 10-325 mg [Concomitant]

REACTIONS (4)
  - Drug ineffective for unapproved indication [Unknown]
  - Insomnia [Unknown]
  - Application site irritation [Unknown]
  - Therapy change [Unknown]
